FAERS Safety Report 9060535 (Version 1)
Quarter: 2013Q1

REPORT INFORMATION
  Report Type: Other
  Country: NO (occurrence: NO)
  Receive Date: 20130212
  Receipt Date: 20130212
  Transmission Date: 20140127
  Serious: Yes (Other)
  Sender: FDA-Public Use
  Company Number: NO-NICOBRDEVP-2013-02153

PATIENT
  Sex: Male

DRUGS (4)
  1. CYTARABINE [Suspect]
     Indication: PRODUCT USED FOR UNKNOWN INDICATION
     Dosage: UNK
     Route: 065
  2. ETOPOSIDE [Suspect]
     Indication: PRODUCT USED FOR UNKNOWN INDICATION
     Dosage: UNK
     Route: 065
  3. CELECOXIB [Suspect]
     Indication: PRODUCT USED FOR UNKNOWN INDICATION
     Dosage: UNK
     Route: 065
  4. THALIDOMIDE [Suspect]
     Indication: PRODUCT USED FOR UNKNOWN INDICATION
     Dosage: UNK
     Route: 065

REACTIONS (8)
  - Arachnoiditis [Recovering/Resolving]
  - Fall [Unknown]
  - Fatigue [Unknown]
  - Deafness [Recovering/Resolving]
  - Mucosal inflammation [Unknown]
  - Febrile neutropenia [Recovered/Resolved]
  - Sinusitis [Unknown]
  - Somnolence [Unknown]
